FAERS Safety Report 4317811-3 (Version None)
Quarter: 2004Q1

REPORT INFORMATION
  Report Type: 
  Country: None (occurrence: None)
  Receive Date: 20040312
  Receipt Date: 20040302
  Transmission Date: 20041129
  Serious: Yes (Hospitalization)
  Sender: FDA-Public Use
  Company Number: APP200400241

PATIENT
  Age: 35 Year
  Sex: Female

DRUGS (6)
  1. STERILE VANCOMYCIN HYDROCHLORIDE, USP (VANCOMYCIN HYDROCHLORIDE) [Suspect]
     Dosage: 2.5 GM (1.25 GM, 1 IN 12 HR), INTRAVENOUS
     Route: 042
     Dates: start: 20040221, end: 20040226
  2. LOVOXAL [Concomitant]
  3. FLAGYL [Concomitant]
  4. COMPAZINE [Concomitant]
  5. COLACE (DOCUSATE SODIUM) [Concomitant]
  6. OXYCODONE/TYLENOL [Concomitant]

REACTIONS (6)
  - DYSPNOEA [None]
  - LYMPHOCYTE COUNT DECREASED [None]
  - RASH GENERALISED [None]
  - RASH PAPULAR [None]
  - RASH PRURITIC [None]
  - WHITE BLOOD CELL COUNT DECREASED [None]
